FAERS Safety Report 8328434-3 (Version None)
Quarter: 2012Q2

REPORT INFORMATION
  Report Type: 
  Country: None (occurrence: None)
  Receive Date: 20120417
  Receipt Date: 20120404
  Transmission Date: 20120825
  Serious: Yes (Death)
  Sender: FDA-Public Use
  Company Number: 2012PROUSA01205

PATIENT
  Age: 73 Year
  Sex: Male
  Weight: 74.8 kg

DRUGS (9)
  1. PROVENGE [Suspect]
     Indication: PROSTATE CANCER METASTATIC
     Dosage: 250 ML, SINGLE, INTRAVENOUS, 250 ML, SINGLE, INTRAVENOUS
     Route: 042
     Dates: start: 20120305, end: 20120305
  2. PROVENGE [Suspect]
     Indication: PROSTATE CANCER METASTATIC
     Dosage: 250 ML, SINGLE, INTRAVENOUS, 250 ML, SINGLE, INTRAVENOUS
     Route: 042
     Dates: start: 20120319, end: 20120319
  3. METOPROLOL TARTRATE [Concomitant]
  4. LEVOTHYROXINE SODIUM [Concomitant]
  5. PROVENGE [Suspect]
  6. MEGESTROL ACETATE [Concomitant]
  7. SIMVASTATIN [Concomitant]
  8. LEUPROLIDE (LEUPRORELIN) [Concomitant]
  9. ZOLEDRONIC ACID [Concomitant]

REACTIONS (11)
  - UNRESPONSIVE TO STIMULI [None]
  - VASCULAR CALCIFICATION [None]
  - PULSE ABSENT [None]
  - CAROTID ARTERY DISEASE [None]
  - AREFLEXIA [None]
  - LUNG INFILTRATION [None]
  - FALL [None]
  - CERVICAL VERTEBRAL FRACTURE [None]
  - TRAUMATIC LUNG INJURY [None]
  - ASPIRATION [None]
  - EXCORIATION [None]
